FAERS Safety Report 11659599 (Version 1)
Quarter: 2015Q4

REPORT INFORMATION
  Report Type: Spontaneous
  Country: GB (occurrence: GB)
  Receive Date: 20151026
  Receipt Date: 20151026
  Transmission Date: 20160304
  Serious: Yes (Disabling)
  Sender: FDA-Public Use
  Company Number: GB-WATSON-2015-22505

PATIENT
  Age: 35 Year
  Sex: Female
  Weight: 53.97 kg

DRUGS (1)
  1. OMEPRAZOLE (UNKNOWN) [Suspect]
     Active Substance: OMEPRAZOLE
     Indication: NAUSEA
     Dosage: 40 MG, UNK
     Route: 048
     Dates: start: 20150729, end: 20150826

REACTIONS (4)
  - Paraesthesia [Unknown]
  - Abdominal pain upper [Recovering/Resolving]
  - Night sweats [Unknown]
  - Anxiety [Unknown]

NARRATIVE: CASE EVENT DATE: 20150729
